FAERS Safety Report 14418629 (Version 1)
Quarter: 2018Q1

REPORT INFORMATION
  Report Type: Spontaneous
  Country: DE (occurrence: DE)
  Receive Date: 20180122
  Receipt Date: 20180122
  Transmission Date: 20180509
  Serious: Yes (Life-Threatening, Hospitalization)
  Sender: FDA-Public Use
  Company Number: DE-MYLANLABS-2018M1004197

PATIENT
  Age: 48 Year
  Sex: Male

DRUGS (6)
  1. IBUPROFEN. [Suspect]
     Active Substance: IBUPROFEN
     Indication: PAIN
     Dosage: 2400 MG, QD
     Route: 048
  2. IBUPROFEN. [Suspect]
     Active Substance: IBUPROFEN
     Indication: ASTHMA
     Dosage: 90 DF, 3X/DAY (90 TABLETS, HIGH DOSE)
     Route: 048
  3. IBUPROFEN. [Suspect]
     Active Substance: IBUPROFEN
     Dosage: 90 DF, 3X/DAY (90 TABLETS, HIGH DOSE)
     Route: 048
  4. IBUPROFEN. [Suspect]
     Active Substance: IBUPROFEN
     Dosage: 2400 MG, QD
     Route: 048
  5. IBUPROFEN. [Suspect]
     Active Substance: IBUPROFEN
     Dosage: 90 DF, 3X/DAY (90 TABLETS, HIGH DOSE)
     Route: 048
  6. IBUPROFEN. [Suspect]
     Active Substance: IBUPROFEN
     Dosage: 2400 MG, QD
     Route: 048

REACTIONS (8)
  - Intentional overdose [Unknown]
  - Tachycardia [Recovered/Resolved]
  - Acute kidney injury [Recovering/Resolving]
  - Metabolic acidosis [Recovering/Resolving]
  - Hypotension [Unknown]
  - Toxicity to various agents [Recovered/Resolved]
  - Suicide attempt [Unknown]
  - Cardiovascular insufficiency [Unknown]
